FAERS Safety Report 5728434-3 (Version None)
Quarter: 2008Q2

REPORT INFORMATION
  Report Type: 
  Country: None (occurrence: None)
  Receive Date: 20080506
  Receipt Date: 20080506
  Transmission Date: 20081010
  Serious: Yes (Death, Other)
  Sender: FDA-Public Use
  Company Number: None

PATIENT
  Age: 78 Year
  Sex: Male

DRUGS (1)
  1. HEPARIN [Suspect]
     Indication: RENAL FAILURE CHRONIC

REACTIONS (3)
  - DYSPNOEA [None]
  - HYPOTENSION [None]
  - TACHYCARDIA [None]
